FAERS Safety Report 11274300 (Version 1)
Quarter: 2015Q3

REPORT INFORMATION
  Report Type: Spontaneous
  Country: SE (occurrence: SE)
  Receive Date: 20150715
  Receipt Date: 20150715
  Transmission Date: 20151125
  Serious: Yes (Other)
  Sender: FDA-Public Use
  Company Number: SE-TEVA-578463ISR

PATIENT
  Age: 78 Year
  Sex: Female

DRUGS (2)
  1. METHOTREXATE [Suspect]
     Active Substance: METHOTREXATE
     Route: 065
  2. ARAVA [Suspect]
     Active Substance: LEFLUNOMIDE

REACTIONS (3)
  - Diarrhoea [Unknown]
  - Alanine aminotransferase increased [Unknown]
  - Blood pressure increased [Unknown]
